FAERS Safety Report 15116895 (Version 1)
Quarter: 2018Q3

REPORT INFORMATION
  Report Type: Spontaneous
  Country: US (occurrence: US)
  Receive Date: 20180706
  Receipt Date: 20180706
  Transmission Date: 20181010
  Serious: No
  Sender: FDA-Public Use
  Company Number: US-ASTRAZENECA-2017SE62960

PATIENT
  Age: 82 Year
  Sex: Male

DRUGS (9)
  1. LOSARTAN. [Concomitant]
     Active Substance: LOSARTAN
  2. SYNTHROID [Concomitant]
     Active Substance: LEVOTHYROXINE SODIUM
  3. PLAVIX [Concomitant]
     Active Substance: CLOPIDOGREL BISULFATE
  4. MOVANTIK [Suspect]
     Active Substance: NALOXEGOL OXALATE
     Indication: CONSTIPATION
     Route: 048
  5. ZOCOR [Concomitant]
     Active Substance: SIMVASTATIN
  6. OXYCODONE [Concomitant]
     Active Substance: OXYCODONE
  7. ASA [Concomitant]
     Active Substance: ASPIRIN
  8. METOPROLOL. [Concomitant]
     Active Substance: METOPROLOL
  9. BENTYLO [Concomitant]

REACTIONS (10)
  - Oesophageal motility disorder [Unknown]
  - Gastrointestinal haemorrhage [Unknown]
  - Abnormal loss of weight [Unknown]
  - Diverticulum intestinal [Unknown]
  - Occult blood [Unknown]
  - Iron deficiency anaemia [Unknown]
  - Abdominal pain [Unknown]
  - Drug ineffective [Unknown]
  - Melaena [Unknown]
  - Haemorrhoids [Unknown]
